FAERS Safety Report 17413572 (Version 7)
Quarter: 2023Q1

REPORT INFORMATION
  Report Type: Spontaneous
  Country: PL (occurrence: PL)
  Receive Date: 20200213
  Receipt Date: 20230302
  Transmission Date: 20230418
  Serious: Yes (Life-Threatening, Hospitalization, Other)
  Sender: FDA-Public Use
  Company Number: PL-SA-2020SA032424

PATIENT
  Age: 44 Year
  Sex: Male
  Weight: 72 kg

DRUGS (12)
  1. PREDNISONE [Suspect]
     Active Substance: PREDNISONE
     Indication: Immunosuppression
     Dosage: UNK
     Dates: start: 19990722, end: 20031210
  2. PREDNISONE [Suspect]
     Active Substance: PREDNISONE
     Dosage: 5 MG, QD
     Dates: start: 20150519
  3. METHYLPREDNISOLONE [Suspect]
     Active Substance: METHYLPREDNISOLONE
     Indication: Kidney transplant rejection
     Dosage: UNK; PULSE
     Dates: start: 200003
  4. LEFLUNOMIDE [Suspect]
     Active Substance: LEFLUNOMIDE
     Indication: Immunosuppression
     Dosage: UNK
     Dates: start: 2014, end: 201505
  5. BLEOMYCIN [Suspect]
     Active Substance: BLEOMYCIN SULFATE
     Indication: Hodgkin^s disease stage III
     Dosage: UNK
     Route: 065
     Dates: start: 201401, end: 201410
  6. DACARBAZINE [Suspect]
     Active Substance: DACARBAZINE
     Indication: Hodgkin^s disease stage III
     Dosage: UNK
     Dates: start: 201401, end: 201410
  7. CYCLOSPORINE [Suspect]
     Active Substance: CYCLOSPORINE
     Indication: Immunosuppression
     Dosage: UNK
     Dates: start: 19990720, end: 20151028
  8. CYCLOSPORINE [Suspect]
     Active Substance: CYCLOSPORINE
     Dosage: 25 MG, BID
     Dates: start: 20160103
  9. MYCOPHENOLATE MOFETIL [Suspect]
     Active Substance: MYCOPHENOLATE MOFETIL
     Indication: Immunosuppression
     Dosage: UNK
     Dates: start: 19990720, end: 20150217
  10. RITUXIMAB [Suspect]
     Active Substance: RITUXIMAB
     Indication: Hodgkin^s disease stage III
     Dosage: UNK
     Dates: start: 201401, end: 201410
  11. DOXORUBICIN [Suspect]
     Active Substance: DOXORUBICIN
     Indication: Hodgkin^s disease stage III
     Dosage: UNK
     Route: 065
     Dates: start: 201401, end: 201410
  12. VINBLASTINE [Suspect]
     Active Substance: VINBLASTINE
     Indication: Hodgkin^s disease stage III
     Dosage: UNK
     Dates: start: 201401, end: 201410

REACTIONS (31)
  - Emphysema [Recovered/Resolved]
  - Cardiac failure chronic [Recovered/Resolved]
  - Orthopnoea [Recovered/Resolved]
  - Aortic valve incompetence [Recovered/Resolved]
  - Aortic valve disease mixed [Recovered/Resolved]
  - Pleural effusion [Recovered/Resolved with Sequelae]
  - Acute kidney injury [Recovered/Resolved]
  - Ascites [Recovered/Resolved with Sequelae]
  - Pyrexia [Recovered/Resolved]
  - Tachycardia [Recovered/Resolved]
  - Aortic stenosis [Recovered/Resolved]
  - Splenomegaly [Recovered/Resolved]
  - Transplant failure [Recovered/Resolved with Sequelae]
  - Pulmonary hypertension [Recovered/Resolved]
  - Hyperkinetic heart syndrome [Recovered/Resolved]
  - Endocarditis [Recovered/Resolved]
  - C-reactive protein increased [Recovered/Resolved]
  - Epstein-Barr virus infection [Unknown]
  - Hodgkin^s disease [Unknown]
  - Anaemia [Recovered/Resolved with Sequelae]
  - Cytomegalovirus infection [Unknown]
  - Cytomegalovirus infection reactivation [Recovered/Resolved]
  - Encephalitis fungal [Unknown]
  - Staphylococcal infection [Recovered/Resolved]
  - Pneumonia [Recovered/Resolved with Sequelae]
  - Bronchitis bacterial [Recovered/Resolved with Sequelae]
  - Lung abscess [Recovered/Resolved with Sequelae]
  - Oral herpes [Recovered/Resolved]
  - Leukocytosis [Recovered/Resolved]
  - Staphylococcal sepsis [Recovered/Resolved]
  - Blood bilirubin increased [Recovered/Resolved]

NARRATIVE: CASE EVENT DATE: 20001001
